FAERS Safety Report 19503955 (Version 2)
Quarter: 2021Q3

REPORT INFORMATION
  Report Type: Spontaneous
  Country: DE (occurrence: DE)
  Receive Date: 20210707
  Receipt Date: 20210715
  Transmission Date: 20211014
  Serious: Yes (Life-Threatening, Hospitalization)
  Sender: FDA-Public Use
  Company Number: DE-TEVA-2021-DE-1927883

PATIENT
  Age: 79 Year
  Sex: Male
  Weight: 76 kg

DRUGS (6)
  1. PANTOPRAZOL [Concomitant]
     Active Substance: PANTOPRAZOLE SODIUM
     Indication: GASTROOESOPHAGEAL REFLUX DISEASE
     Dosage: 20 MILLIGRAM DAILY; EVERY DAYS
  2. FALITHROM [Suspect]
     Active Substance: PHENPROCOUMON
     Indication: CORONARY ARTERY DISEASE
     Dosage: 1.5 MILLIGRAM DAILY; EVERY DAYS
     Route: 065
  3. ALENDRONAT [Suspect]
     Active Substance: ALENDRONATE SODIUM
     Indication: OSTEOPOROSIS
     Dosage: DAILY DOSE: 70 MG MILLGRAM(S) EVERY WEEKS
     Route: 065
  4. TILIDINE [Interacting]
     Active Substance: TILIDINE
     Indication: BACK PAIN
     Dosage: 50/4; 4 TABLETS / DAY
     Route: 065
  5. VIGANTOLETTEN [Concomitant]
     Active Substance: CHOLECALCIFEROL
     Indication: OSTEOPOROSIS
     Dosage: 1000 IU (INTERNATIONAL UNIT) DAILY;  EVERY DAYS
  6. ATORVASTATIN [Concomitant]
     Active Substance: ATORVASTATIN
     Indication: LIPID METABOLISM DISORDER
     Dosage: 20 MILLIGRAM DAILY; EVERY DAYS

REACTIONS (6)
  - Drug interaction [Unknown]
  - International normalised ratio increased [Unknown]
  - Haematoma [Unknown]
  - Anaemia [Unknown]
  - Haematuria [Unknown]
  - Melaena [Unknown]

NARRATIVE: CASE EVENT DATE: 20200423
